FAERS Safety Report 8206748-5 (Version None)
Quarter: 2012Q1

REPORT INFORMATION
  Report Type: 
  Country: None (occurrence: None)
  Receive Date: 20120314
  Receipt Date: 20120306
  Transmission Date: 20120608
  Serious: Yes (Death, Other)
  Sender: FDA-Public Use
  Company Number: RO-BRISTOL-MYERS SQUIBB COMPANY-16354664

PATIENT
  Age: 69 Year
  Sex: Female

DRUGS (7)
  1. FUROSEMIDE [Concomitant]
     Dosage: 1DF=1/2 TAB
     Dates: start: 20120103
  2. INSULINE [Suspect]
     Indication: DIABETES MELLITUS
  3. YERVOY [Suspect]
     Indication: METASTATIC MALIGNANT MELANOMA
     Dosage: DURATION OF THERAPY: APPROXIMATELY 7 WEEKS
     Route: 042
     Dates: start: 20111122, end: 20120103
  4. SPIRONOLACTONE [Concomitant]
     Dates: start: 20120103
  5. CALCIUM GLUCONATE [Concomitant]
     Dosage: 1DF=1 VIAL
  6. METOCLOPRAMIDE [Suspect]
     Indication: NAUSEA
     Dosage: 1DF=1/2 TAB
  7. EPOETIN BETA [Concomitant]
     Dates: start: 20111101

REACTIONS (14)
  - ASTHENIA [None]
  - ACUTE RESPIRATORY FAILURE [None]
  - DECREASED APPETITE [None]
  - LYMPHOEDEMA [None]
  - ABDOMINAL DISTENSION [None]
  - ANXIETY [None]
  - VISUAL IMPAIRMENT [None]
  - HEADACHE [None]
  - HYPOCALCAEMIA [None]
  - SINUS TACHYCARDIA [None]
  - SKIN LESION [None]
  - VERTIGO [None]
  - DYSPNOEA EXERTIONAL [None]
  - NAUSEA [None]
